FAERS Safety Report 13350795 (Version 2)
Quarter: 2017Q2

REPORT INFORMATION
  Report Type: Spontaneous
  Country: JP (occurrence: JP)
  Receive Date: 20170320
  Receipt Date: 20170612
  Transmission Date: 20170830
  Serious: Yes (Hospitalization, Other)
  Sender: FDA-Public Use
  Company Number: JP-ELI_LILLY_AND_COMPANY-JP201703004522

PATIENT
  Age: 58 Year
  Sex: Male
  Weight: 68 kg

DRUGS (7)
  1. ALIMTA [Suspect]
     Active Substance: PEMETREXED DISODIUM
     Indication: LUNG ADENOCARCINOMA RECURRENT
     Dosage: 900 MG, DAILY
     Route: 041
     Dates: start: 20161201, end: 20170105
  2. LYRICA [Concomitant]
     Active Substance: PREGABALIN
     Indication: HYPOAESTHESIA
     Dosage: 75 MG, DAILY
     Route: 048
     Dates: start: 20160202, end: 20170330
  3. PANVITAN                           /05664401/ [Concomitant]
     Indication: PROPHYLAXIS
     Dosage: 1 G, DAILY
     Route: 048
     Dates: start: 20160630, end: 20170201
  4. TRAMCET [Concomitant]
     Active Substance: ACETAMINOPHEN\TRAMADOL
     Indication: PAIN
  5. METHYCOBAL [Concomitant]
     Active Substance: METHYLCOBALAMIN
     Indication: PROPHYLAXIS
     Dosage: 1000 UG, UNK
     Route: 030
     Dates: start: 20160630, end: 20170105
  6. TRAMCET [Concomitant]
     Active Substance: ACETAMINOPHEN\TRAMADOL
     Indication: HYPOAESTHESIA
     Dosage: 3 DF, DAILY
     Route: 048
     Dates: start: 20160202, end: 20170330
  7. LYRICA [Concomitant]
     Active Substance: PREGABALIN
     Indication: PAIN

REACTIONS (2)
  - Malignant neoplasm progression [Unknown]
  - Neuropathy peripheral [Not Recovered/Not Resolved]

NARRATIVE: CASE EVENT DATE: 20170107
